FAERS Safety Report 20216134 (Version 3)
Quarter: 2022Q1

REPORT INFORMATION
  Report Type: Spontaneous
  Country: SI (occurrence: SI)
  Receive Date: 20211222
  Receipt Date: 20220106
  Transmission Date: 20220424
  Serious: Yes (Death, Hospitalization, Other)
  Sender: FDA-Public Use
  Company Number: SI-ROCHE-2946356

PATIENT
  Age: 72 Year
  Sex: Male

DRUGS (20)
  1. MYCOPHENOLATE MOFETIL [Suspect]
     Active Substance: MYCOPHENOLATE MOFETIL
     Indication: Prophylaxis against transplant rejection
     Dosage: UNK
     Route: 065
  2. MYCOPHENOLATE MOFETIL [Suspect]
     Active Substance: MYCOPHENOLATE MOFETIL
     Indication: Immunosuppressant drug therapy
  3. GANCICLOVIR [Suspect]
     Active Substance: GANCICLOVIR
     Indication: Cytomegalovirus infection
     Dosage: 325 MILLIGRAM, QD
     Route: 042
  4. CYCLOSPORINE [Suspect]
     Active Substance: CYCLOSPORINE
     Indication: Prophylaxis against transplant rejection
     Dosage: UNK
     Route: 065
  5. CYCLOSPORINE [Suspect]
     Active Substance: CYCLOSPORINE
     Indication: Immunosuppressant drug therapy
  6. METHYLPREDNISOLONE [Suspect]
     Active Substance: METHYLPREDNISOLONE
     Indication: Prophylaxis against transplant rejection
     Dosage: UNK
     Route: 065
  7. METHYLPREDNISOLONE [Suspect]
     Active Substance: METHYLPREDNISOLONE
     Indication: Immunosuppressant drug therapy
  8. VALGANCICLOVIR [Suspect]
     Active Substance: VALGANCICLOVIR
     Indication: Cytomegalovirus infection
     Dosage: 900 MILLIGRAM, QD
     Route: 048
  9. VALGANCICLOVIR [Suspect]
     Active Substance: VALGANCICLOVIR
     Dosage: UNK (FOR 3 MONTHS)
     Route: 065
  10. BASILIXIMAB [Suspect]
     Active Substance: BASILIXIMAB
     Indication: Prophylaxis against transplant rejection
     Dosage: UNK
     Route: 065
  11. BASILIXIMAB [Suspect]
     Active Substance: BASILIXIMAB
     Indication: Immunosuppressant drug therapy
  12. FOSCARNET [Suspect]
     Active Substance: FOSCARNET
     Indication: Cytomegalovirus infection
     Dosage: UNK
  13. FOSCARNET [Suspect]
     Active Substance: FOSCARNET
     Dosage: UNK UNK, Q3W (REDUCED DOSE)
  14. FOSCARNET [Suspect]
     Active Substance: FOSCARNET
     Dosage: UNK (FOR 3 WEEKS)
  15. FOSCARNET [Suspect]
     Active Substance: FOSCARNET
     Dosage: UNK UNK, Q3W (ADAPTED DOSE)
  16. FUROSEMIDE [Concomitant]
     Active Substance: FUROSEMIDE
     Indication: Drug therapy
     Dosage: 1000 MILLIGRAM, QD
  17. VANCOMYCIN [Concomitant]
     Active Substance: VANCOMYCIN
     Indication: Antibiotic therapy
     Dosage: UNK
  18. FLUCLOXACILLIN MAGNESIUM [Concomitant]
     Active Substance: FLUCLOXACILLIN MAGNESIUM OCTAHYDRATE
     Indication: Antibiotic therapy
     Dosage: UNK
  19. MEROPENEM ANHYDROUS [Concomitant]
     Active Substance: MEROPENEM ANHYDROUS
     Indication: Antibiotic therapy
     Dosage: UNK
  20. PIPERACILLIN SODIUM\TAZOBACTAM SODIUM [Concomitant]
     Active Substance: PIPERACILLIN SODIUM\TAZOBACTAM SODIUM
     Indication: Antibiotic therapy
     Dosage: UNK

REACTIONS (19)
  - Respiratory tract infection fungal [Fatal]
  - Pneumocystis jirovecii infection [Fatal]
  - Multiple organ dysfunction syndrome [Fatal]
  - Fungal infection [Fatal]
  - Renal tubular disorder [Fatal]
  - Glomerulonephropathy [Fatal]
  - Cytomegalovirus infection [Fatal]
  - Drug resistance [Unknown]
  - Hypotension [Unknown]
  - Toxicity to various agents [Unknown]
  - Infusion site cellulitis [Unknown]
  - Drug ineffective [Unknown]
  - Hypervolaemia [Unknown]
  - Hypertension [Unknown]
  - Atrial fibrillation [Unknown]
  - Arteriosclerosis [Unknown]
  - Leukopenia [Unknown]
  - Infection [Unknown]
  - Off label use [Unknown]
